FAERS Safety Report 13795051 (Version 6)
Quarter: 2022Q3

REPORT INFORMATION
  Report Type: Report from Study
  Country: DE (occurrence: DE)
  Receive Date: 20170726
  Receipt Date: 20220831
  Transmission Date: 20221026
  Serious: Yes (Hospitalization, Other)
  Sender: FDA-Public Use
  Company Number: PHHY2017DE058258

PATIENT
  Age: 12 Year
  Sex: Female

DRUGS (3)
  1. GLIVEC [Suspect]
     Active Substance: IMATINIB MESYLATE
     Indication: Acute lymphocytic leukaemia
     Dosage: 300 UNK, QD
     Route: 048
     Dates: start: 20140123, end: 20161227
  2. GLIVEC [Suspect]
     Active Substance: IMATINIB MESYLATE
     Indication: Systemic scleroderma
  3. GLIVEC [Suspect]
     Active Substance: IMATINIB MESYLATE
     Indication: Philadelphia chromosome positive

REACTIONS (14)
  - Sepsis [Recovered/Resolved]
  - Staphylococcal infection [Recovered/Resolved]
  - Hypokalaemia [Unknown]
  - Escherichia sepsis [Recovered/Resolved]
  - Pseudomonal sepsis [Recovered/Resolved]
  - Thrombocytopenia [Recovered/Resolved]
  - Leukopenia [Recovered/Resolved]
  - Febrile neutropenia [Recovered/Resolved]
  - Hypertonia [Unknown]
  - Diarrhoea [Unknown]
  - Pyrexia [Unknown]
  - Haemoglobin decreased [Unknown]
  - Fungal infection [Unknown]
  - Hypertension [Unknown]

NARRATIVE: CASE EVENT DATE: 20160530
